FAERS Safety Report 4317139-1 (Version None)
Quarter: 2004Q1

REPORT INFORMATION
  Report Type: 
  Country: None (occurrence: None)
  Receive Date: 20040312
  Receipt Date: 20040302
  Transmission Date: 20041129
  Serious: Yes (Disabling)
  Sender: FDA-Public Use
  Company Number: 2002CG03185

PATIENT
  Age: 48 Year
  Sex: Female

DRUGS (2)
  1. ZOMIG [Suspect]
     Indication: MIGRAINE
     Dosage: 2.5 MG PO
     Route: 048
     Dates: end: 20011215
  2. ZOMIG [Suspect]
     Indication: MIGRAINE
     Dosage: 5 MG DAILY PO
     Route: 048
     Dates: start: 20011215, end: 20011215

REACTIONS (2)
  - CEREBRAL INFARCTION [None]
  - HEMIANOPIA [None]
